FAERS Safety Report 6255760-4 (Version None)
Quarter: 2009Q3

REPORT INFORMATION
  Report Type: 
  Country: None (occurrence: None)
  Receive Date: 20090701
  Receipt Date: 20090615
  Transmission Date: 20100115
  Serious: Yes (Other)
  Sender: FDA-Public Use
  Company Number: 2009S1010516

PATIENT
  Age: 16 Year
  Sex: Male

DRUGS (1)
  1. ISOTRETINOIN [Suspect]
     Indication: ACNE
     Dosage: ORAL
     Route: 048
     Dates: start: 20031101, end: 20040201

REACTIONS (3)
  - GASTROINTESTINAL OEDEMA [None]
  - HELICOBACTER INFECTION [None]
  - HENOCH-SCHONLEIN PURPURA [None]
